FAERS Safety Report 7658513-5 (Version None)
Quarter: 2011Q3

REPORT INFORMATION
  Report Type: 
  Country: None (occurrence: None)
  Receive Date: 20110805
  Receipt Date: 20110727
  Transmission Date: 20111222
  Serious: Yes (Hospitalization)
  Sender: FDA-Public Use
  Company Number: BR-US-EMD SERONO, INC.-7073761

PATIENT
  Sex: Female

DRUGS (3)
  1. FLUOXETINE [Concomitant]
  2. REBIF [Suspect]
     Indication: RELAPSING-REMITTING MULTIPLE SCLEROSIS
  3. REBIF [Suspect]

REACTIONS (5)
  - MUSCULOSKELETAL STIFFNESS [None]
  - HEADACHE [None]
  - PAIN [None]
  - EAR PAIN [None]
  - BALANCE DISORDER [None]
